FAERS Safety Report 19371661 (Version 1)
Quarter: 2021Q2

REPORT INFORMATION
  Report Type: Report from Study
  Country: CO (occurrence: CO)
  Receive Date: 20210603
  Receipt Date: 20210603
  Transmission Date: 20210717
  Serious: Yes (Other)
  Sender: FDA-Public Use
  Company Number: NVSC2021CO123452

PATIENT
  Sex: Male
  Weight: 54 kg

DRUGS (2)
  1. LOSARTAN. [Suspect]
     Active Substance: LOSARTAN
     Indication: HYPERTENSION
     Dosage: QD, (STARTED: 6 YEARS AGO)
     Route: 048
  2. DIHYDROCODEINE [Concomitant]
     Active Substance: DIHYDROCODEINE
     Indication: RENAL DISORDER
     Dosage: QD, (STARTED: 6 YEARS AGO)
     Route: 048

REACTIONS (1)
  - Myelofibrosis [Unknown]
